FAERS Safety Report 8313423-5 (Version None)
Quarter: 2012Q2

REPORT INFORMATION
  Report Type: 
  Country: None (occurrence: None)
  Receive Date: 20120426
  Receipt Date: 20120423
  Transmission Date: 20120825
  Serious: Yes (Death)
  Sender: FDA-Public Use
  Company Number: PHHY2012US034877

PATIENT

DRUGS (2)
  1. GLEEVEC [Suspect]
     Dosage: 340 MG/ M2
  2. AVASTIN [Suspect]
     Indication: LUNG DISORDER
     Dosage: 10 MG/ KG

REACTIONS (1)
  - DEATH [None]
